FAERS Safety Report 5828958-4 (Version None)
Quarter: 2008Q3

REPORT INFORMATION
  Report Type: 
  Country: None (occurrence: None)
  Receive Date: 20080731
  Receipt Date: 20080718
  Transmission Date: 20090109
  Serious: Yes (Hospitalization)
  Sender: FDA-Public Use
  Company Number: PHHO2008NO07885

PATIENT
  Sex: Male

DRUGS (2)
  1. RAD 666 RAD++PTR [Suspect]
     Indication: HEART AND LUNG TRANSPLANT
     Dosage: 0.5 MG, BID
     Route: 048
     Dates: start: 20071207
  2. NEORAL [Suspect]
     Indication: HEART AND LUNG TRANSPLANT
     Dosage: 50 MG, BID
     Route: 048
     Dates: start: 20031211

REACTIONS (1)
  - DEEP VEIN THROMBOSIS [None]
